FAERS Safety Report 5801392-9 (Version None)
Quarter: 2008Q2

REPORT INFORMATION
  Report Type: 
  Country: None (occurrence: None)
  Receive Date: 20080626
  Receipt Date: 20070716
  Transmission Date: 20081010
  Serious: Yes (Other)
  Sender: FDA-Public Use
  Company Number: 507183

PATIENT
  Age: 82 Year
  Sex: Male
  Weight: 64.4 kg

DRUGS (1)
  1. XELODA [Suspect]
     Dosage: 1650 MG 2 PER DAY

REACTIONS (3)
  - DIARRHOEA [None]
  - PALMAR-PLANTAR ERYTHRODYSAESTHESIA SYNDROME [None]
  - STOMATITIS [None]
